FAERS Safety Report 7606297-9 (Version None)
Quarter: 2011Q3

REPORT INFORMATION
  Report Type: 
  Country: None (occurrence: None)
  Receive Date: 20110713
  Receipt Date: 20110629
  Transmission Date: 20111222
  Serious: Yes (Other)
  Sender: FDA-Public Use
  Company Number: US-BAYER-2010-002825

PATIENT
  Sex: Female
  Weight: 150 kg

DRUGS (21)
  1. YASMIN [Suspect]
     Indication: PRODUCT USED FOR UNKNOWN INDICATION
     Dosage: NOT TAKEN ON 09-OCT-2002
     Dates: start: 20020925, end: 20020101
  2. NAPROXEN [Concomitant]
     Dosage: 500 MG, UNK
  3. GABAPENTIN [Concomitant]
     Dosage: 60 MG, UNK
  4. PSEUDOEPHEDRINE HCL [Concomitant]
     Dosage: 30 MG, UNK
  5. HYDROCODONE BITARTRATE AND ACETAMINOPHEN [Concomitant]
  6. CHLORPHENIRAMINE W/PSEUDOEPHEDRINE [Concomitant]
  7. FERROUS SULFATE TAB [Concomitant]
     Dosage: 325 MG, UNK
  8. CELEBREX [Concomitant]
     Dosage: 200 MG, UNK
  9. OMEPRAZOLE [Concomitant]
     Dosage: 20 MG, UNK
  10. ACIPHEX [Concomitant]
     Dosage: 20 MG, UNK
  11. AMITRIPTYLINE HCL [Concomitant]
     Dosage: 50 MG, UNK
  12. LORATADINE [Concomitant]
     Dosage: 10 MG, UNK
  13. YASMIN [Suspect]
     Dosage: UNK
     Dates: end: 20100101
  14. DROSPIRENONE AND ETHINYL ESTRADIOL [Suspect]
  15. PROTONIX [Concomitant]
     Dosage: 40 MG, UNK
  16. DIFLUCAN [Concomitant]
     Dosage: 150 MG, UNK
  17. METHOCARBAMOL [Concomitant]
     Dosage: 750 MG, UNK
  18. PROPOXYPHENE HYDROCHLORIDE [Concomitant]
  19. PROMETHAZINE [Concomitant]
     Dosage: 25 MG, UNK
  20. PEPCID [Concomitant]
  21. CYCLOBENAZPRINE [Concomitant]
     Dosage: 10 MG, UNK

REACTIONS (5)
  - GALLBLADDER DISORDER [None]
  - ABDOMINAL PAIN [None]
  - CHOLECYSTITIS CHRONIC [None]
  - CHOLESTEROSIS [None]
  - CHOLELITHIASIS [None]
